FAERS Safety Report 7711795-3 (Version None)
Quarter: 2011Q3

REPORT INFORMATION
  Report Type: 
  Country: None (occurrence: None)
  Receive Date: 20110826
  Receipt Date: 20110815
  Transmission Date: 20111222
  Serious: No
  Sender: FDA-Public Use
  Company Number: US-B.I. PHARMACEUTICALS,INC./RIDGEFIELD-2011-BP-19996BP

PATIENT
  Sex: Male

DRUGS (7)
  1. GLIMEPIRIDE [Concomitant]
     Indication: DIABETES MELLITUS
     Dosage: 1 MG
     Route: 048
  2. DILTIAZEM [Concomitant]
     Indication: ATRIAL FIBRILLATION
     Dosage: 30 MG
     Route: 048
  3. XALATAN [Concomitant]
     Indication: SLEEP APNOEA SYNDROME
     Route: 045
  4. SIMAVASTATIN [Concomitant]
     Indication: BLOOD CHOLESTEROL INCREASED
     Dosage: 40 MG
     Route: 048
  5. PRADAXA [Suspect]
     Indication: ATRIAL FIBRILLATION
     Dosage: 300 MG
     Route: 048
     Dates: start: 20110801
  6. METFORMIN HCL [Concomitant]
     Indication: DIABETES MELLITUS
     Dosage: 500 MG
     Route: 048
  7. MULTI-VITAMIN [Concomitant]
     Indication: THROMBOCYTOPENIA
     Route: 048

REACTIONS (5)
  - ABDOMINAL PAIN [None]
  - DYSPHAGIA [None]
  - DIARRHOEA [None]
  - FLATULENCE [None]
  - DYSPEPSIA [None]
